FAERS Safety Report 11038508 (Version 2)
Quarter: 2015Q2

REPORT INFORMATION
  Report Type: Spontaneous
  Country: US (occurrence: US)
  Receive Date: 20150416
  Receipt Date: 20150504
  Transmission Date: 20150821
  Serious: Yes (Death)
  Sender: FDA-Public Use
  Company Number: US-INCYTE CORPORATION-2015IN001550

PATIENT
  Age: 88 Year
  Sex: Male

DRUGS (1)
  1. JAKAFI [Suspect]
     Active Substance: RUXOLITINIB
     Indication: MYELOFIBROSIS
     Dosage: 15 MG, BID
     Route: 048
     Dates: end: 20150408

REACTIONS (3)
  - Pneumonia [Fatal]
  - Renal failure [Fatal]
  - Urosepsis [Fatal]

NARRATIVE: CASE EVENT DATE: 20150408
